FAERS Safety Report 5927702-X (Version None)
Quarter: 2008Q4

REPORT INFORMATION
  Report Type: 
  Country: None (occurrence: None)
  Receive Date: 20081020
  Receipt Date: 20081014
  Transmission Date: 20090506
  Serious: Yes (Other)
  Sender: FDA-Public Use
  Company Number: 2008SP019378

PATIENT
  Age: 65 Year
  Sex: Male
  Weight: 90.7194 kg

DRUGS (2)
  1. CLARITIN [Suspect]
     Indication: ASTHMA
     Dosage: 10 MG; QD; PO
     Route: 048
     Dates: start: 20080522, end: 20080611
  2. CLARITIN [Suspect]
     Indication: ASTHMA
     Dosage: 10 MG; QD; PO
     Route: 048
     Dates: start: 20080904, end: 20080918

REACTIONS (4)
  - ASTHMA [None]
  - CONDITION AGGRAVATED [None]
  - NASAL CONGESTION [None]
  - RHINORRHOEA [None]
